FAERS Safety Report 5142003-8 (Version None)
Quarter: 2006Q4

REPORT INFORMATION
  Report Type: 
  Country: None (occurrence: None)
  Receive Date: 20061102
  Receipt Date: 20061024
  Transmission Date: 20070319
  Serious: Yes (Other)
  Sender: FDA-Public Use
  Company Number: GB-JNJFOC-20061004605

PATIENT
  Age: 39 Year
  Sex: Male

DRUGS (4)
  1. INFLIXIMAB [Suspect]
     Dosage: 3 TO 5 MG/KG, ONCE EVERY 8-10 WEEKS
  2. INFLIXIMAB [Suspect]
     Indication: PSORIASIS
     Dosage: AT 0, 2 AND 6 WEEKS
  3. METHOTREXATE [Concomitant]
  4. MYCOPHENOLATE MOFETIL [Concomitant]

REACTIONS (2)
  - THROMBOCYTOPENIA [None]
  - TUBERCULOSIS [None]
